FAERS Safety Report 16265748 (Version 1)
Quarter: 2019Q2

REPORT INFORMATION
  Report Type: Spontaneous
  Country: CA (occurrence: CA)
  Receive Date: 20190502
  Receipt Date: 20190502
  Transmission Date: 20190711
  Serious: Yes (Other)
  Sender: FDA-Public Use
  Company Number: CA-BAYER-2019-083964

PATIENT
  Age: 44 Year
  Sex: Female
  Weight: 63 kg

DRUGS (21)
  1. NAPROXEN [NAPROXEN SODIUM] [Concomitant]
     Dosage: UNK
  2. PANTOPRAZOLE [Suspect]
     Active Substance: PANTOPRAZOLE
     Indication: PRODUCT USED FOR UNKNOWN INDICATION
     Dosage: UNK
     Route: 048
  3. PREDNISONE. [Suspect]
     Active Substance: PREDNISONE
     Indication: RHEUMATOID ARTHRITIS
     Dosage: 15 MG, QD
     Route: 065
  4. TRIMETHOPRIM. [Suspect]
     Active Substance: TRIMETHOPRIM
     Indication: PRODUCT USED FOR UNKNOWN INDICATION
     Dosage: UNK
     Route: 065
  5. ESOMEPRAZOLE MAGNESIUM TRIHYDRATE [Suspect]
     Active Substance: ESOMEPRAZOLE MAGNESIUM
     Indication: PRODUCT USED FOR UNKNOWN INDICATION
     Dosage: UNK
     Route: 065
  6. METHOTREXATE. [Suspect]
     Active Substance: METHOTREXATE
     Indication: RHEUMATOID ARTHRITIS
     Dosage: 20 MG
     Route: 048
  7. XELJANZ [Suspect]
     Active Substance: TOFACITINIB CITRATE
     Indication: RHEUMATOID ARTHRITIS
     Dosage: 10 MG, QD
  8. NAPROXEN SODIUM ({= 220 MG) [Suspect]
     Active Substance: NAPROXEN SODIUM
     Indication: PRODUCT USED FOR UNKNOWN INDICATION
     Dosage: UNK
     Route: 048
  9. ACETAMINOPHEN. [Suspect]
     Active Substance: ACETAMINOPHEN
     Indication: PRODUCT USED FOR UNKNOWN INDICATION
     Dosage: UNK
     Route: 065
  10. AMITRIPTYLINE [Suspect]
     Active Substance: AMITRIPTYLINE
     Indication: PRODUCT USED FOR UNKNOWN INDICATION
     Dosage: 75 MG, QD
     Route: 048
  11. METHYLPREDNISOLONE. [Suspect]
     Active Substance: METHYLPREDNISOLONE
     Indication: RHEUMATOID ARTHRITIS
     Dosage: UNK
     Route: 014
  12. HYDROXYCHLOROQUINE [Concomitant]
     Active Substance: HYDROXYCHLOROQUINE
     Dosage: UNK
  13. AZATHIOPRINE. [Suspect]
     Active Substance: AZATHIOPRINE
     Indication: PRODUCT USED FOR UNKNOWN INDICATION
     Dosage: 150 MG
     Route: 065
  14. HUMIRA [Suspect]
     Active Substance: ADALIMUMAB
     Indication: DRUG THERAPY
     Dosage: 40 MG
     Route: 058
  15. RANITIDINE. [Suspect]
     Active Substance: RANITIDINE
     Indication: PRODUCT USED FOR UNKNOWN INDICATION
     Dosage: 300 MG, QD
     Route: 048
  16. ETANERCEPT [Suspect]
     Active Substance: ETANERCEPT
     Indication: RHEUMATOID ARTHRITIS
     Dosage: 50 MG
     Route: 058
  17. FOLIC ACID. [Concomitant]
     Active Substance: FOLIC ACID
     Dosage: UNK
  18. SULFASALAZINE. [Suspect]
     Active Substance: SULFASALAZINE
     Indication: RHEUMATOID ARTHRITIS
     Dosage: 1 G, QD
     Route: 048
  19. AZATHIOPRINE. [Suspect]
     Active Substance: AZATHIOPRINE
     Indication: RHEUMATOID ARTHRITIS
     Dosage: 150 MG, BID
     Route: 048
  20. ALENDRONATE [Suspect]
     Active Substance: ALENDRONATE SODIUM
     Indication: PRODUCT USED FOR UNKNOWN INDICATION
     Dosage: UNK
     Route: 065
  21. MELOXICAM. [Suspect]
     Active Substance: MELOXICAM
     Indication: PRODUCT USED FOR UNKNOWN INDICATION
     Dosage: UNK
     Route: 065

REACTIONS (51)
  - Joint effusion [Unknown]
  - Pain [Unknown]
  - Abdominal pain [Unknown]
  - Conjunctivitis [Unknown]
  - Dry mouth [Unknown]
  - Malaise [Unknown]
  - Ocular hyperaemia [Unknown]
  - Photophobia [Unknown]
  - Scleritis [Unknown]
  - Synovial cyst [Unknown]
  - Infection [Unknown]
  - Lung disorder [Unknown]
  - Nausea [Unknown]
  - Nodule [Unknown]
  - Swelling face [Unknown]
  - Tenosynovitis stenosans [Unknown]
  - Wheezing [Unknown]
  - Crepitations [Unknown]
  - Therapeutic product effect decreased [Unknown]
  - Dry eye [Unknown]
  - Erythema [Unknown]
  - Impaired work ability [Unknown]
  - Pain in extremity [Unknown]
  - Rash [Unknown]
  - Synovial fluid analysis [Unknown]
  - Thrombosis [Unknown]
  - Antinuclear antibody [Unknown]
  - Bursitis [Unknown]
  - Cushingoid [Unknown]
  - Dyspnoea [Unknown]
  - Interstitial lung disease [Unknown]
  - Peripheral swelling [Unknown]
  - Pruritus [Unknown]
  - Rheumatoid arthritis [Unknown]
  - Ulcer [Unknown]
  - Atelectasis [Unknown]
  - Eye pain [Unknown]
  - Musculoskeletal pain [Unknown]
  - Rheumatoid nodule [Unknown]
  - Eye irritation [Unknown]
  - Pleuritic pain [Unknown]
  - Pneumonia [Unknown]
  - Tenderness [Unknown]
  - Neoplasm malignant [Unknown]
  - Arthralgia [Unknown]
  - Feeling jittery [Unknown]
  - Fibromyalgia [Unknown]
  - Flank pain [Unknown]
  - Joint swelling [Unknown]
  - Musculoskeletal stiffness [Unknown]
  - Visual impairment [Unknown]
